FAERS Safety Report 8218672-2 (Version None)
Quarter: 2012Q1

REPORT INFORMATION
  Report Type: 
  Country: None (occurrence: None)
  Receive Date: 20120319
  Receipt Date: 20120307
  Transmission Date: 20120608
  Serious: Yes (Hospitalization)
  Sender: FDA-Public Use
  Company Number: PHHY2012RU021070

PATIENT
  Age: 60 Year
  Sex: Male

DRUGS (3)
  1. IMATINIB MESYLATE [Suspect]
     Dosage: 800 MG DAILY
     Route: 048
     Dates: start: 20120203
  2. DIUVER [Concomitant]
     Dosage: 10 G FIVE TIMES A DAY
  3. LISINOPRIL [Concomitant]
     Dosage: 5 G, QD

REACTIONS (4)
  - PAIN [None]
  - CARDIAC FAILURE [None]
  - CHEST PAIN [None]
  - CORONARY ARTERY DISEASE [None]
